FAERS Safety Report 15765951 (Version 1)
Quarter: 2018Q4

REPORT INFORMATION
  Report Type: Spontaneous
  Country: US (occurrence: US)
  Receive Date: 20181227
  Receipt Date: 20181227
  Transmission Date: 20190205
  Serious: Yes (Other)
  Sender: FDA-Public Use
  Company Number: US-SA-2018SA393386

PATIENT
  Age: 39 Year
  Sex: Female
  Weight: 88 kg

DRUGS (8)
  1. VANCOMYCIN [Suspect]
     Active Substance: VANCOMYCIN
  2. CEFACLOR. [Suspect]
     Active Substance: CEFACLOR
  3. CELECOXIB. [Suspect]
     Active Substance: CELECOXIB
  4. ZOLPIDEM TARTRATE. [Suspect]
     Active Substance: ZOLPIDEM TARTRATE
  5. AMOXICILLIN. [Suspect]
     Active Substance: AMOXICILLIN
  6. AMITRIPTYLINE HYDROCHLORIDE. [Suspect]
     Active Substance: AMITRIPTYLINE HYDROCHLORIDE
  7. CIPROFLOXACIN. [Suspect]
     Active Substance: CIPROFLOXACIN
  8. METFORMIN HYDROCHLORIDE. [Suspect]
     Active Substance: METFORMIN HYDROCHLORIDE

REACTIONS (4)
  - Vomiting [Unknown]
  - Rash [Unknown]
  - Anaphylactic reaction [Unknown]
  - Nausea [Unknown]
